FAERS Safety Report 21823560 (Version 4)
Quarter: 2023Q1

REPORT INFORMATION
  Report Type: Other
  Country: US (occurrence: US)
  Receive Date: 20230105
  Receipt Date: 20230320
  Transmission Date: 20230418
  Serious: No
  Sender: FDA-Public Use
  Company Number: US-DECIPHERA PHARMACEUTICALS LLC-2022US001086

PATIENT
  Sex: Male

DRUGS (1)
  1. QINLOCK [Suspect]
     Active Substance: RIPRETINIB
     Indication: Gastrointestinal stromal tumour
     Dosage: 150 MILLIGRAM, QD
     Route: 048
     Dates: start: 20221205

REACTIONS (7)
  - Burning sensation [Unknown]
  - Blood iron decreased [Unknown]
  - Post procedural infection [Unknown]
  - Malaise [Unknown]
  - Pain [Unknown]
  - Cough [Unknown]
  - Fatigue [Unknown]
